FAERS Safety Report 17611062 (Version 1)
Quarter: 2020Q2

REPORT INFORMATION
  Report Type: Spontaneous
  Country: US (occurrence: US)
  Receive Date: 20200401
  Receipt Date: 20200401
  Transmission Date: 20200713
  Serious: Yes (Other)
  Sender: FDA-Public Use
  Company Number: None

PATIENT
  Age: 45 Year
  Sex: Female
  Weight: 78.75 kg

DRUGS (3)
  1. WOMAN MULTI VITAMINS [Concomitant]
  2. ALBUTEROL SULFATE HFA INHALATION AEROSOL [Suspect]
     Active Substance: ALBUTEROL SULFATE
     Indication: ASTHMA
     Dosage: ?          OTHER STRENGTH:MCG PER ACTUATION;QUANTITY:2 PUFF(S);?
     Route: 048
     Dates: start: 20180529, end: 20191228
  3. VITAMIN C [Concomitant]
     Active Substance: ASCORBIC ACID

REACTIONS (6)
  - Suicidal ideation [None]
  - Psychomotor hyperactivity [None]
  - Hyperphagia [None]
  - Depression [None]
  - Anxiety [None]
  - Weight increased [None]

NARRATIVE: CASE EVENT DATE: 20200328
